FAERS Safety Report 10987630 (Version 2)
Quarter: 2015Q2

REPORT INFORMATION
  Report Type: Spontaneous
  Country: US (occurrence: US)
  Receive Date: 20150404
  Receipt Date: 20150525
  Transmission Date: 20150821
  Serious: No
  Sender: FDA-Public Use
  Company Number: US-JNJFOC-20150107690

PATIENT
  Age: 62 Year
  Sex: Female
  Weight: 90.72 kg

DRUGS (8)
  1. METHOTREXATE [Concomitant]
     Active Substance: METHOTREXATE
     Indication: ARTHRITIS
     Route: 065
  2. REMICADE [Suspect]
     Active Substance: INFLIXIMAB
     Indication: COMPLEX REGIONAL PAIN SYNDROME
     Route: 042
  3. REMICADE [Suspect]
     Active Substance: INFLIXIMAB
     Indication: ARTHRITIS
     Route: 042
  4. DEXILANT [Concomitant]
     Active Substance: DEXLANSOPRAZOLE
     Indication: GASTROOESOPHAGEAL REFLUX DISEASE
     Route: 065
     Dates: start: 2012
  5. REMICADE [Suspect]
     Active Substance: INFLIXIMAB
     Indication: FIBROMYALGIA
     Route: 042
  6. CYMBALTA [Concomitant]
     Active Substance: DULOXETINE HYDROCHLORIDE
     Indication: PAIN
     Route: 065
     Dates: start: 2012
  7. GABAPENTIN. [Concomitant]
     Active Substance: GABAPENTIN
     Indication: COMPLEX REGIONAL PAIN SYNDROME
     Route: 065
     Dates: start: 2009
  8. METHOTREXATE [Concomitant]
     Active Substance: METHOTREXATE
     Indication: COMPLEX REGIONAL PAIN SYNDROME
     Route: 065

REACTIONS (2)
  - Influenza [Not Recovered/Not Resolved]
  - Memory impairment [Not Recovered/Not Resolved]

NARRATIVE: CASE EVENT DATE: 20150109
